FAERS Safety Report 9050962 (Version 2)
Quarter: 2013Q1

REPORT INFORMATION
  Report Type: Report from Study
  Country: SE (occurrence: SE)
  Receive Date: 20130205
  Receipt Date: 20130307
  Transmission Date: 20140127
  Serious: Yes (Death, Life-Threatening)
  Sender: FDA-Public Use
  Company Number: SE-AMGEN-SWECT2013007328

PATIENT
  Age: 60 Year
  Sex: Male

DRUGS (2)
  1. ETANERCEPT [Suspect]
     Indication: RHEUMATOID ARTHRITIS
     Dosage: 50 MG, WEEKLY
     Route: 058
     Dates: start: 20070903, end: 20101004
  2. PREDNISOLONE [Concomitant]
     Dosage: UNK
     Dates: start: 19990503

REACTIONS (2)
  - Lip and/or oral cavity cancer [Fatal]
  - Metastases to lymph nodes [Fatal]
